FAERS Safety Report 10369557 (Version 2)
Quarter: 2015Q4

REPORT INFORMATION
  Report Type: Spontaneous
  Country: US (occurrence: US)
  Receive Date: 20140807
  Receipt Date: 20151013
  Transmission Date: 20160304
  Serious: No
  Sender: FDA-Public Use
  Company Number: US-AMGEN-USASP2013086164

PATIENT
  Sex: Female

DRUGS (1)
  1. NEUPOGEN [Suspect]
     Active Substance: FILGRASTIM
     Indication: NEUTROPHIL COUNT ABNORMAL
     Dosage: UNK
     Route: 065
     Dates: start: 2013

REACTIONS (2)
  - White blood cell count increased [Unknown]
  - Overdose [Unknown]

NARRATIVE: CASE EVENT DATE: 2013
